FAERS Safety Report 7858293-4 (Version None)
Quarter: 2011Q4

REPORT INFORMATION
  Report Type: 
  Country: None (occurrence: None)
  Receive Date: 20111027
  Receipt Date: 20111021
  Transmission Date: 20120403
  Serious: Yes (Death, Other)
  Sender: FDA-Public Use
  Company Number: US-BAYER-2011-102916

PATIENT
  Age: 30 Year
  Sex: Female

DRUGS (1)
  1. BEYAZ [Suspect]
     Dosage: UNK

REACTIONS (4)
  - DYSPNOEA [None]
  - PERIPHERAL EMBOLISM [None]
  - PULMONARY EMBOLISM [None]
  - PNEUMONIA [None]
